FAERS Safety Report 18926845 (Version 1)
Quarter: 2021Q1

REPORT INFORMATION
  Report Type: Spontaneous
  Country: US (occurrence: US)
  Receive Date: 20210223
  Receipt Date: 20210223
  Transmission Date: 20210420
  Serious: Yes (Hospitalization, Other)
  Sender: FDA-Public Use
  Company Number: US-HETERO-HET2021US00244

PATIENT
  Age: 73 Year
  Sex: Male

DRUGS (2)
  1. ACICLOVIR [Concomitant]
     Active Substance: ACYCLOVIR
     Indication: HERPES ZOSTER
     Dosage: UNK
     Route: 065
  2. OSELTAMIVIR [Suspect]
     Active Substance: OSELTAMIVIR
     Indication: HERPES ZOSTER
     Dosage: UNK
     Route: 048

REACTIONS (2)
  - Colitis ischaemic [Unknown]
  - Lower gastrointestinal haemorrhage [Unknown]
